FAERS Safety Report 9287520 (Version 3)
Quarter: 2013Q2

REPORT INFORMATION
  Report Type: Spontaneous
  Country: JP (occurrence: JP)
  Receive Date: 20130514
  Receipt Date: 20130529
  Transmission Date: 20140414
  Serious: Yes (Other)
  Sender: FDA-Public Use
  Company Number: JP-PFIZER INC-2013143053

PATIENT
  Age: 31 Day
  Sex: Male

DRUGS (1)
  1. HYDROCORTISONE [Suspect]
     Dosage: 10 MG/KG

REACTIONS (3)
  - Cardiac hypertrophy [Recovered/Resolved]
  - Mitral valve incompetence [Recovered/Resolved]
  - Peritonitis [Recovered/Resolved]
